FAERS Safety Report 7343317-3 (Version None)
Quarter: 2011Q1

REPORT INFORMATION
  Report Type: 
  Country: None (occurrence: None)
  Receive Date: 20110310
  Receipt Date: 20110303
  Transmission Date: 20110831
  Serious: Yes (Hospitalization)
  Sender: FDA-Public Use
  Company Number: US-ROXANE LABORATORIES, INC.-2011-RO-00257RO

PATIENT
  Sex: Female

DRUGS (2)
  1. DONNATAL [Suspect]
  2. OXCARBAZEPINE [Suspect]

REACTIONS (1)
  - CONVULSION [None]
